FAERS Safety Report 12258405 (Version 1)
Quarter: 2016Q2

REPORT INFORMATION
  Report Type: Spontaneous
  Country: US (occurrence: US)
  Receive Date: 20160412
  Receipt Date: 20160412
  Transmission Date: 20160815
  Serious: No
  Sender: FDA-Public Use
  Company Number: US-SA-2015SA044599

PATIENT
  Age: 43 Year
  Sex: Male

DRUGS (1)
  1. ALLEGRA [Suspect]
     Active Substance: FEXOFENADINE HYDROCHLORIDE
     Indication: NASAL CONGESTION
     Dosage: HAD BEEN TAKING IT FOR ABOUT 3 WEEKS AND STOPPED APPROXIMATELY 2 WEEKS AGO
     Route: 048

REACTIONS (1)
  - Drug ineffective [Unknown]
